FAERS Safety Report 5400134-9 (Version None)
Quarter: 2007Q3

REPORT INFORMATION
  Report Type: 
  Country: None (occurrence: None)
  Receive Date: 20070730
  Receipt Date: 20070719
  Transmission Date: 20080115
  Serious: Yes (Other)
  Sender: FDA-Public Use
  Company Number: US-JNJFOC-20070401935

PATIENT
  Sex: Male
  Weight: 124.74 kg

DRUGS (16)
  1. REMICADE [Suspect]
     Indication: CROHN'S DISEASE
     Route: 042
  2. LIPITOR [Concomitant]
  3. ATENOLOL [Concomitant]
  4. HYDROCHLOROTHIAZIDE [Concomitant]
  5. ACTOS [Concomitant]
  6. CLARINEX [Concomitant]
  7. PREVACID [Concomitant]
  8. AMBIEN [Concomitant]
  9. AMITRIPTYLINE HCL [Concomitant]
  10. FLEXERIL [Concomitant]
  11. ASPIRIN [Concomitant]
  12. CENTRUM SILVER [Concomitant]
  13. XIFAXAN [Concomitant]
  14. AZASAN [Concomitant]
  15. QUINAPRIL [Concomitant]
  16. GAMFIBROZIL [Concomitant]

REACTIONS (1)
  - BLOOD GLUCOSE INCREASED [None]
